FAERS Safety Report 4863400-1 (Version None)
Quarter: 2005Q4

REPORT INFORMATION
  Report Type: 
  Country: None (occurrence: None)
  Receive Date: 20051222
  Receipt Date: 20041201
  Transmission Date: 20060501
  Serious: No
  Sender: FDA-Public Use
  Company Number: US-GLAXOSMITHKLINE-A0536226A

PATIENT
  Sex: Female

DRUGS (1)
  1. FLONASE [Suspect]
     Indication: DRUG USE FOR UNKNOWN INDICATION
     Route: 045
     Dates: start: 20041119, end: 20041120

REACTIONS (4)
  - ASTHENOPIA [None]
  - DIZZINESS [None]
  - NASAL DISCOMFORT [None]
  - SOMNOLENCE [None]
